FAERS Safety Report 8820190 (Version 2)
Quarter: 2013Q1

REPORT INFORMATION
  Report Type: Spontaneous
  Country: US (occurrence: US)
  Receive Date: 20121002
  Receipt Date: 20130103
  Transmission Date: 20140127
  Serious: Yes (Hospitalization)
  Sender: FDA-Public Use
  Company Number: US-BIOGENIDEC-2012BI040551

PATIENT
  Sex: Female

DRUGS (1)
  1. TYSABRI [Suspect]
     Indication: MULTIPLE SCLEROSIS
     Route: 042
     Dates: start: 20120503, end: 20120726

REACTIONS (8)
  - Urinary tract infection [Unknown]
  - Sepsis [Recovered/Resolved]
  - Pneumonia [Recovered/Resolved]
  - Respiratory arrest [Recovered/Resolved]
  - Cough [Unknown]
  - Dyspnoea [Unknown]
  - Nasopharyngitis [Not Recovered/Not Resolved]
  - Drug withdrawal syndrome [Unknown]
